FAERS Safety Report 10130381 (Version 2)
Quarter: 2014Q2

REPORT INFORMATION
  Report Type: Spontaneous
  Country: US (occurrence: US)
  Receive Date: 20140428
  Receipt Date: 20140515
  Transmission Date: 20141212
  Serious: Yes (Other)
  Sender: FDA-Public Use
  Company Number: US-ASTELLAS-2014US004079

PATIENT
  Age: 83 Year
  Sex: Female

DRUGS (1)
  1. MYRBETRIQ [Suspect]
     Indication: HYPERTONIC BLADDER
     Route: 048
     Dates: start: 2013, end: 20140411

REACTIONS (3)
  - Peripheral swelling [Unknown]
  - Weight increased [Unknown]
  - Drug ineffective [Unknown]
